FAERS Safety Report 15126678 (Version 1)
Quarter: 2018Q3

REPORT INFORMATION
  Report Type: Spontaneous
  Country: GB (occurrence: GB)
  Receive Date: 20180710
  Receipt Date: 20180710
  Transmission Date: 20181010
  Serious: Yes (Other)
  Sender: FDA-Public Use
  Company Number: GB-PFIZER INC-2018271928

PATIENT
  Age: 89 Year
  Sex: Male
  Weight: 69 kg

DRUGS (10)
  1. WARFARIN SODIUM. [Concomitant]
     Active Substance: WARFARIN SODIUM
     Dosage: UNK (TAKE AS DIRECTED IN YOUR YELLOWBOOK)
     Dates: start: 20170222
  2. SPIRONOLACTONE. [Suspect]
     Active Substance: SPIRONOLACTONE
     Dosage: UNK
     Dates: start: 20180222
  3. BECLOMETASONE [Concomitant]
     Active Substance: BECLOMETHASONE DIPROPIONATE
     Dosage: 4 DF, 1X/DAY (EACH NOSTRIL)
     Route: 045
     Dates: start: 20180426, end: 20180524
  4. LANSOPRAZOLE. [Concomitant]
     Active Substance: LANSOPRAZOLE
     Indication: DYSPEPSIA
     Dosage: 1 DF, 1X/DAY
     Dates: start: 20170206
  5. FUROSEMIDE. [Concomitant]
     Active Substance: FUROSEMIDE
     Dosage: 1 DF, 1X/DAY (MORNING)
     Dates: start: 20161220
  6. FYBOGEL [Concomitant]
     Active Substance: PLANTAGO OVATA SEED
     Dosage: 2 DF, 1X/DAY (USE AS DIRECTED, SACHET)
     Dates: start: 20161220
  7. MONOPOST [Concomitant]
     Active Substance: LATANOPROST
     Dosage: 1 DF, 1X/DAY (INTO THE AFFECTED EYE(S) AT NIGHT)
     Dates: start: 20170222
  8. SIMVASTATIN. [Concomitant]
     Active Substance: SIMVASTATIN
     Indication: HYPERCHOLESTEROLAEMIA
     Dosage: 1 DF, 1X/DAY (AT NIGHT)
     Dates: start: 20170222
  9. CANDESARTAN. [Concomitant]
     Active Substance: CANDESARTAN
     Dosage: 1 DF, 1X/DAY
     Dates: start: 20170222
  10. DORZOLAMIDE HYDROCHLORIDE. [Concomitant]
     Active Substance: DORZOLAMIDE HYDROCHLORIDE
     Dosage: 2 DF, 1X/DAY (INTO RIGHT EYE)
     Dates: start: 20161220

REACTIONS (2)
  - Confusional state [Unknown]
  - Hypotension [Recovered/Resolved]

NARRATIVE: CASE EVENT DATE: 20180222
